FAERS Safety Report 7807943-7 (Version None)
Quarter: 2011Q4

REPORT INFORMATION
  Report Type: 
  Country: None (occurrence: None)
  Receive Date: 20111011
  Receipt Date: 20111011
  Transmission Date: 20120403
  Serious: Yes (Other)
  Sender: FDA-Public Use
  Company Number: None

PATIENT
  Age: 55 Year
  Sex: Male
  Weight: 51.709 kg

DRUGS (1)
  1. SIMCOR [Suspect]
     Indication: STENT PLACEMENT
     Dosage: ONE DAILY AT BEDTIME
     Dates: start: 20110908, end: 20111007

REACTIONS (3)
  - BACK PAIN [None]
  - MYALGIA [None]
  - ASTHENIA [None]
